FAERS Safety Report 25967937 (Version 1)
Quarter: 2025Q4

REPORT INFORMATION
  Report Type: Spontaneous
  Country: US (occurrence: US)
  Receive Date: 20251028
  Receipt Date: 20251028
  Transmission Date: 20260117
  Serious: No
  Sender: SUNOVION
  Company Number: US-SMPA-2025SPA012980

PATIENT

DRUGS (2)
  1. ORGOVYX [Suspect]
     Active Substance: RELUGOLIX
     Indication: Product used for unknown indication
     Dosage: I^VE BEEN ON ORGOVYX + ZYTIGA FOR LITTLE OVER 10 MONTHS
     Route: 048
  2. ZYTIGA [Suspect]
     Active Substance: ABIRATERONE ACETATE
     Indication: Product used for unknown indication
     Dosage: I^VE BEEN ON ORGOVYX + ZYTIGA FOR LITTLE OVER 10 MONTHS

REACTIONS (3)
  - Insomnia [Unknown]
  - Depression [Unknown]
  - Hot flush [Unknown]
